FAERS Safety Report 21779813 (Version 3)
Quarter: 2023Q1

REPORT INFORMATION
  Report Type: Spontaneous
  Country: US (occurrence: US)
  Receive Date: 20221226
  Receipt Date: 20230226
  Transmission Date: 20230418
  Serious: Yes (Other)
  Sender: FDA-Public Use
  Company Number: US-JNJFOC-20221251485

PATIENT
  Age: 63 Year
  Sex: Female

DRUGS (11)
  1. ELMIRON [Suspect]
     Active Substance: PENTOSAN POLYSULFATE SODIUM
     Indication: Cystitis interstitial
     Route: 048
     Dates: start: 1998, end: 2020
  2. ELMIRON [Suspect]
     Active Substance: PENTOSAN POLYSULFATE SODIUM
     Route: 048
     Dates: end: 20220310
  3. CYCLOBENZAPRINE [Concomitant]
     Active Substance: CYCLOBENZAPRINE
     Indication: Fibromyalgia
     Dates: start: 2015, end: 2022
  4. AZELAIC ACID [Concomitant]
     Active Substance: AZELAIC ACID
     Indication: Rosacea
     Dates: start: 2019, end: 2022
  5. DESLORATADINE [Concomitant]
     Active Substance: DESLORATADINE
     Indication: Multiple allergies
     Dates: start: 2019, end: 2020
  6. DESLORATADINE [Concomitant]
     Active Substance: DESLORATADINE
     Dates: start: 2020, end: 2022
  7. GABAPENTIN [Concomitant]
     Active Substance: GABAPENTIN
     Indication: Fibromyalgia
     Dates: start: 2020
  8. PREDNISONE [Concomitant]
     Active Substance: PREDNISONE
     Indication: Infection
     Dates: start: 2016, end: 2020
  9. METHYLPREDNISOLONE [Concomitant]
     Active Substance: METHYLPREDNISOLONE
     Indication: Temporomandibular joint syndrome
     Dates: start: 2020, end: 2020
  10. BREO ELLIPTA [Concomitant]
     Active Substance: FLUTICASONE FUROATE\VILANTEROL TRIFENATATE
     Indication: Asthma
     Dates: start: 2019, end: 2020
  11. FLUCONAZOLE [Concomitant]
     Active Substance: FLUCONAZOLE
     Indication: Fungal infection
     Dates: start: 2014, end: 2022

REACTIONS (2)
  - Maculopathy [Unknown]
  - Toxicity to various agents [Unknown]

NARRATIVE: CASE EVENT DATE: 20200810
